FAERS Safety Report 18118987 (Version 2)
Quarter: 2020Q3

REPORT INFORMATION
  Report Type: Spontaneous
  Country: JP (occurrence: JP)
  Receive Date: 20200806
  Receipt Date: 20200812
  Transmission Date: 20201103
  Serious: Yes (Death, Other)
  Sender: FDA-Public Use
  Company Number: JP-JAZZ-2020-JP-009747

PATIENT
  Age: 64 Year
  Sex: Female

DRUGS (1)
  1. DEFITELIO [Suspect]
     Active Substance: DEFIBROTIDE SODIUM
     Indication: VENOOCCLUSIVE LIVER DISEASE
     Dosage: UNKNOWN DOSE AND UNKNOWN FREQUENCY
     Route: 042
     Dates: start: 20200621, end: 20200729

REACTIONS (3)
  - Venoocclusive liver disease [Fatal]
  - Condition aggravated [Fatal]
  - Hepatic failure [Fatal]

NARRATIVE: CASE EVENT DATE: 2020
